FAERS Safety Report 8370469-9 (Version None)
Quarter: 2012Q2

REPORT INFORMATION
  Report Type: 
  Country: None (occurrence: None)
  Receive Date: 20120518
  Receipt Date: 20120515
  Transmission Date: 20120825
  Serious: Yes (Other)
  Sender: FDA-Public Use
  Company Number: PHEH2012US007277

PATIENT
  Sex: Male

DRUGS (3)
  1. VITAMIN D [Concomitant]
     Dosage: 50000 U, WEEKLY
  2. GILENYA [Suspect]
     Indication: RELAPSING-REMITTING MULTIPLE SCLEROSIS
     Dosage: 0.5 MG, DAILY
     Route: 048
     Dates: start: 20110908
  3. VITAMIN B COMPLEX CAP [Concomitant]
     Dosage: UNK UKN, OT

REACTIONS (10)
  - DECREASED APPETITE [None]
  - ANXIETY [None]
  - DIZZINESS [None]
  - CENTRAL NERVOUS SYSTEM LESION [None]
  - PANIC ATTACK [None]
  - WEIGHT DECREASED [None]
  - CLAUSTROPHOBIA [None]
  - TREMOR [None]
  - DYSPNOEA PAROXYSMAL NOCTURNAL [None]
  - TOOTH INFECTION [None]
